FAERS Safety Report 11075844 (Version 2)
Quarter: 2015Q2

REPORT INFORMATION
  Report Type: Spontaneous
  Country: FR (occurrence: FR)
  Receive Date: 20150429
  Receipt Date: 20150508
  Transmission Date: 20150821
  Serious: Yes (Hospitalization)
  Sender: FDA-Public Use
  Company Number: FR-TEVA-558460ISR

PATIENT
  Age: 70 Year
  Sex: Male

DRUGS (4)
  1. HYDROCHLOROTHIAZIDE. [Concomitant]
     Active Substance: HYDROCHLOROTHIAZIDE
     Route: 065
     Dates: start: 201204
  2. IRBESARTAN. [Concomitant]
     Active Substance: IRBESARTAN
     Route: 065
     Dates: start: 201204
  3. METFORMIN [Suspect]
     Active Substance: METFORMIN HYDROCHLORIDE
     Dosage: 1000 MILLIGRAM DAILY;
     Route: 065
     Dates: start: 201204
  4. ASPIRIN. [Concomitant]
     Active Substance: ASPIRIN
     Route: 065
     Dates: start: 201204

REACTIONS (1)
  - Toxic encephalopathy [Recovered/Resolved]
